FAERS Safety Report 22758199 (Version 3)
Quarter: 2024Q1

REPORT INFORMATION
  Report Type: Spontaneous
  Country: JP (occurrence: JP)
  Receive Date: 20230727
  Receipt Date: 20240102
  Transmission Date: 20240410
  Serious: Yes (Death)
  Sender: FDA-Public Use
  Company Number: JP-NShinyaku-EVA201900688ZZLILLY

PATIENT
  Age: 60 Year
  Sex: Female
  Weight: 51.2 kg

DRUGS (17)
  1. TADALAFIL [Suspect]
     Active Substance: TADALAFIL
     Indication: Pulmonary arterial hypertension
     Dosage: 40 MG, DAILY
     Route: 048
     Dates: end: 20190827
  2. UPTRAVI [Suspect]
     Active Substance: SELEXIPAG
     Indication: Pulmonary arterial hypertension
     Dosage: 0.2 MG, DAILY
     Route: 048
     Dates: start: 20170208, end: 20170223
  3. UPTRAVI [Suspect]
     Active Substance: SELEXIPAG
     Dosage: 0.2 MG, BID, EVERY 12 HOURS
     Route: 048
     Dates: start: 20170224, end: 20170310
  4. UPTRAVI [Suspect]
     Active Substance: SELEXIPAG
     Dosage: 0.6 MG, BID, EVERY 12 HOURS
     Route: 048
     Dates: start: 20170311, end: 20170324
  5. UPTRAVI [Suspect]
     Active Substance: SELEXIPAG
     Dosage: 0.4 MG, BID, EVERY 12 HOURS
     Route: 048
     Dates: start: 20170325, end: 20170512
  6. UPTRAVI [Suspect]
     Active Substance: SELEXIPAG
     Dosage: 0.2 MG, BID, EVERY 12 HOURS
     Route: 048
     Dates: start: 20170513, end: 20180308
  7. UPTRAVI [Suspect]
     Active Substance: SELEXIPAG
     Dosage: 0.6 MG, BID, EVERY 12 HOURS
     Route: 048
     Dates: start: 20180309, end: 20180531
  8. UPTRAVI [Suspect]
     Active Substance: SELEXIPAG
     Dosage: 0.4 MG, BID, EVERY 12 HOURS
     Route: 048
     Dates: start: 20180601, end: 20180730
  9. UPTRAVI [Suspect]
     Active Substance: SELEXIPAG
     Dosage: 1 MG, BID, EVERY 12 HOURS
     Route: 048
     Dates: start: 20180731, end: 20190827
  10. OPSUMIT [Concomitant]
     Active Substance: MACITENTAN
     Indication: Pulmonary arterial hypertension
     Dosage: 10 MG, DAILY
     Route: 048
     Dates: end: 20190827
  11. PREDONINE [Concomitant]
     Active Substance: PREDNISOLONE
     Indication: Product used for unknown indication
     Dosage: 7 MG, DAILY
     Route: 048
     Dates: end: 20190827
  12. VONOPRAZAN FUMARATE [Concomitant]
     Active Substance: VONOPRAZAN FUMARATE
     Indication: Gastrooesophageal reflux disease
     Dosage: 10 MG, DAILY
     Route: 048
     Dates: end: 20190827
  13. MOSAPRIDE CITRATE DIHYDRATE [Concomitant]
     Active Substance: MOSAPRIDE CITRATE DIHYDRATE
     Indication: Gastrooesophageal reflux disease
     Dosage: 15 MG, DAILY
     Route: 048
     Dates: end: 20190827
  14. FUROSEMIDE [Concomitant]
     Active Substance: FUROSEMIDE
     Indication: Product used for unknown indication
     Dosage: 80 MG, DAILY
     Route: 048
     Dates: end: 20190827
  15. PROGRAF [Concomitant]
     Active Substance: TACROLIMUS
     Indication: Product used for unknown indication
     Dosage: 3 MG, DAILY
     Route: 048
     Dates: end: 20170913
  16. XARELTO [Concomitant]
     Active Substance: RIVAROXABAN
     Indication: Arrhythmia
     Dosage: 15 MG, DAILY
     Route: 048
     Dates: end: 20190827
  17. DIGOXIN [Concomitant]
     Active Substance: DIGOXIN
     Indication: Product used for unknown indication
     Dosage: 0.031 MG, DAILY
     Route: 048
     Dates: end: 20190827

REACTIONS (2)
  - Pneumonia bacterial [Fatal]
  - Diarrhoea [Recovered/Resolved]

NARRATIVE: CASE EVENT DATE: 20170512
